FAERS Safety Report 12387158 (Version 1)
Quarter: 2016Q2

REPORT INFORMATION
  Report Type: Spontaneous
  Country: US (occurrence: US)
  Receive Date: 20160519
  Receipt Date: 20160519
  Transmission Date: 20160815
  Serious: Yes (Other)
  Sender: FDA-Public Use
  Company Number: US-MDT-ADR-2016-00474

PATIENT
  Age: 46 Year
  Sex: Male

DRUGS (1)
  1. BACLOFEN. [Suspect]
     Active Substance: BACLOFEN
     Route: 037

REACTIONS (5)
  - No therapeutic response [Unknown]
  - Muscle spasticity [Unknown]
  - Pain [Unknown]
  - Muscle spasms [Unknown]
  - Stiff person syndrome [Unknown]
